FAERS Safety Report 8571531-8 (Version None)
Quarter: 2012Q3

REPORT INFORMATION
  Report Type: 
  Country: None (occurrence: None)
  Receive Date: 20120806
  Receipt Date: 20120727
  Transmission Date: 20120928
  Serious: Yes (Hospitalization, Disabling, Other)
  Sender: FDA-Public Use
  Company Number: US-009507513-1203USA03316

PATIENT

DRUGS (9)
  1. FOSAMAX [Suspect]
  2. FOSAMAX [Suspect]
     Indication: OSTEOPENIA
  3. BONIVA [Concomitant]
     Indication: OSTEOPENIA
  4. FOSAMAX [Suspect]
     Indication: OSTEOPOROSIS
     Dosage: UNK MG, UNK
     Route: 048
     Dates: start: 20000101, end: 20080101
  5. FOSAMAX [Suspect]
  6. BONIVA [Concomitant]
     Indication: OSTEOPOROSIS
     Dosage: UNK MG, UNK
     Route: 048
     Dates: start: 20100301, end: 20110101
  7. PREMARIN [Concomitant]
     Indication: HORMONE REPLACEMENT THERAPY
     Dates: start: 19980101, end: 20100101
  8. FOSAMAX [Suspect]
  9. FOSAMAX [Suspect]

REACTIONS (54)
  - STRESS FRACTURE [None]
  - COMPLEX REGIONAL PAIN SYNDROME [None]
  - ANXIETY [None]
  - DIARRHOEA [None]
  - DIVERTICULUM [None]
  - DYSPHAGIA [None]
  - LOW TURNOVER OSTEOPATHY [None]
  - GASTROOESOPHAGEAL REFLUX DISEASE [None]
  - BACK PAIN [None]
  - COMPRESSION FRACTURE [None]
  - PAIN IN EXTREMITY [None]
  - TENDON DISORDER [None]
  - CHEST PAIN [None]
  - NAUSEA [None]
  - DYSPNOEA [None]
  - INSOMNIA [None]
  - OSTEOPOROSIS [None]
  - VITAMIN D DEFICIENCY [None]
  - HYPERTENSION [None]
  - FRACTURE DELAYED UNION [None]
  - INTERVERTEBRAL DISC DEGENERATION [None]
  - ABDOMINAL PAIN [None]
  - DECREASED APPETITE [None]
  - OEDEMA PERIPHERAL [None]
  - DEAFNESS [None]
  - UPPER RESPIRATORY TRACT INFECTION [None]
  - FEMUR FRACTURE [None]
  - ARTHRALGIA [None]
  - MASS [None]
  - ANAL FISTULA [None]
  - PAIN [None]
  - BRONCHITIS [None]
  - ULCER [None]
  - RADICULOPATHY [None]
  - FALL [None]
  - HYPOKALAEMIA [None]
  - STRESS URINARY INCONTINENCE [None]
  - PNEUMOTHORAX [None]
  - ATELECTASIS [None]
  - LEUKOCYTOSIS [None]
  - NEUROPATHY PERIPHERAL [None]
  - DEPRESSION [None]
  - IRRITABLE BOWEL SYNDROME [None]
  - MUSCULOSKELETAL CHEST PAIN [None]
  - TOOTH EXTRACTION [None]
  - BLADDER DYSFUNCTION [None]
  - CYSTOCELE [None]
  - SPINAL COMPRESSION FRACTURE [None]
  - COUGH [None]
  - CONSTIPATION [None]
  - UTERINE DISORDER [None]
  - EMPHYSEMA [None]
  - SUPRAVENTRICULAR EXTRASYSTOLES [None]
  - SKIN LESION [None]
